FAERS Safety Report 13952295 (Version 1)
Quarter: 2017Q3

REPORT INFORMATION
  Report Type: Spontaneous
  Country: US (occurrence: US)
  Receive Date: 20170911
  Receipt Date: 20170911
  Transmission Date: 20171128
  Serious: No
  Sender: FDA-Public Use
  Company Number: US-TEVA-697577USA

PATIENT
  Sex: Female

DRUGS (2)
  1. FENTANYL. [Suspect]
     Active Substance: FENTANYL
     Indication: PAIN
     Dosage: 25MCG
     Route: 062
  2. LEVAQUIN [Suspect]
     Active Substance: LEVOFLOXACIN
     Route: 065

REACTIONS (3)
  - Constipation [Recovered/Resolved]
  - Nausea [Unknown]
  - Product physical issue [Unknown]

NARRATIVE: CASE EVENT DATE: 20160821
